FAERS Safety Report 6834930-8 (Version None)
Quarter: 2010Q3

REPORT INFORMATION
  Report Type: 
  Country: None (occurrence: None)
  Receive Date: 20100712
  Receipt Date: 20070830
  Transmission Date: 20110219
  Serious: No
  Sender: FDA-Public Use
  Company Number: US-PFIZER INC-2007030178

PATIENT
  Sex: Female
  Weight: 90.72 kg

DRUGS (6)
  1. CHANTIX [Suspect]
     Indication: SMOKING CESSATION THERAPY
     Dates: start: 20070208, end: 20070601
  2. CLARINEX [Concomitant]
  3. RISPERDAL [Concomitant]
  4. TOPROL-XL [Concomitant]
  5. NORVASC [Concomitant]
  6. VALSARTAN [Concomitant]

REACTIONS (3)
  - ABNORMAL DREAMS [None]
  - NAUSEA [None]
  - WEIGHT INCREASED [None]
